FAERS Safety Report 16104768 (Version 2)
Quarter: 2019Q2

REPORT INFORMATION
  Report Type: Spontaneous
  Country: US (occurrence: US)
  Receive Date: 20190322
  Receipt Date: 20190429
  Transmission Date: 20190711
  Serious: No
  Sender: FDA-Public Use
  Company Number: US-PFIZER INC-2019114572

PATIENT
  Age: 76 Year
  Sex: Female
  Weight: 81.65 kg

DRUGS (2)
  1. GABAPENTIN. [Suspect]
     Active Substance: GABAPENTIN
     Indication: DIABETIC NEUROPATHY
     Dosage: THREE PILLS ONCE
  2. GABAPENTIN. [Suspect]
     Active Substance: GABAPENTIN
     Indication: FIBROMYALGIA
     Dosage: 200 MG, 1X/DAY (100 MG TWO CAPSULES BY MOUTH AT NIGHT)
     Route: 048
     Dates: start: 2018

REACTIONS (3)
  - Product use issue [Unknown]
  - Balance disorder [Not Recovered/Not Resolved]
  - Drug ineffective for unapproved indication [Not Recovered/Not Resolved]

NARRATIVE: CASE EVENT DATE: 2018
